FAERS Safety Report 9667782 (Version 1)
Quarter: 2013Q4

REPORT INFORMATION
  Report Type: Spontaneous
  Country: US (occurrence: US)
  Receive Date: 20131104
  Receipt Date: 20131104
  Transmission Date: 20140711
  Serious: No
  Sender: FDA-Public Use
  Company Number: US-009507513-1310USA012654

PATIENT
  Sex: Female

DRUGS (2)
  1. JANUVIA [Suspect]
     Dosage: 1 TABLET A DAY
     Route: 048
  2. GLIMEPIRIDE [Concomitant]
     Dosage: 2 TABS TWICE DAILY
     Dates: start: 201110

REACTIONS (1)
  - Blood glucose increased [Unknown]
